FAERS Safety Report 8538555-8 (Version None)
Quarter: 2012Q3

REPORT INFORMATION
  Report Type: 
  Country: None (occurrence: None)
  Receive Date: 20120718
  Receipt Date: 20120718
  Transmission Date: 20120928
  Serious: Yes (Hospitalization)
  Sender: FDA-Public Use
  Company Number: None

PATIENT
  Sex: Female
  Weight: 88.905 kg

DRUGS (3)
  1. AVELOX [Suspect]
     Indication: BRONCHITIS
     Dosage: 1 TABLET DAILY MOUTH
     Route: 048
     Dates: start: 20120605
  2. AVELOX [Suspect]
     Indication: BRONCHITIS
     Dosage: 1 TABLET DAILY MOUTH
     Route: 048
     Dates: start: 20120607
  3. AVELOX [Suspect]
     Indication: BRONCHITIS
     Dosage: 1 TABLET DAILY MOUTH
     Route: 048
     Dates: start: 20120606

REACTIONS (8)
  - AGITATION [None]
  - RENAL FAILURE [None]
  - ECONOMIC PROBLEM [None]
  - GOUT [None]
  - ASTHENIA [None]
  - RESTLESSNESS [None]
  - NIGHTMARE [None]
  - OEDEMA PERIPHERAL [None]
